FAERS Safety Report 25728075 (Version 1)
Quarter: 2025Q3

REPORT INFORMATION
  Report Type: Spontaneous
  Country: CN (occurrence: CN)
  Receive Date: 20250826
  Receipt Date: 20250826
  Transmission Date: 20251020
  Serious: Yes (Other)
  Sender: FRESENIUS KABI
  Company Number: CN-FreseniusKabi-FK202511645

PATIENT
  Age: 74 Year
  Sex: Female

DRUGS (2)
  1. KABIVEN [Suspect]
     Active Substance: ALANINE\ARGININE\ASPARTIC ACID\CALCIUM CHLORIDE\DEXTROSE MONOHYDRATE\GLUTAMIC ACID\GLYCINE\HISTIDINE
     Indication: Oesophageal carcinoma
     Dosage: FOA: INJECTION?TOO FAST INFUSION SPEED OF THE DRUG
     Route: 041
     Dates: start: 20250813, end: 20250813
  2. KABIVEN [Suspect]
     Active Substance: ALANINE\ARGININE\ASPARTIC ACID\CALCIUM CHLORIDE\DEXTROSE MONOHYDRATE\GLUTAMIC ACID\GLYCINE\HISTIDINE
     Dosage: FOA: INJECTION?SLOWLY INFUSED AGAIN
     Route: 041
     Dates: start: 20250814

REACTIONS (2)
  - Palpitations [Recovered/Resolved]
  - Cold sweat [Recovered/Resolved]

NARRATIVE: CASE EVENT DATE: 20250813
